FAERS Safety Report 19263219 (Version 1)
Quarter: 2021Q2

REPORT INFORMATION
  Report Type: Spontaneous
  Country: IT (occurrence: IT)
  Receive Date: 20210517
  Receipt Date: 20210517
  Transmission Date: 20210717
  Serious: Yes (Hospitalization, Other)
  Sender: FDA-Public Use
  Company Number: IT-CELLTRION INC.-2021IT006418

PATIENT

DRUGS (6)
  1. ALDACTONE [POTASSIUM CANRENOATE] [Concomitant]
     Active Substance: CANRENOATE POTASSIUM
  2. BISOPROLOL [Concomitant]
     Active Substance: BISOPROLOL
  3. RAMIPRIL. [Concomitant]
     Active Substance: RAMIPRIL
  4. TRASTUZUMAB (UNKNOWN) [Suspect]
     Active Substance: TRASTUZUMAB
     Indication: BREAST CANCER
     Dosage: UNK
     Route: 065
  5. FUROSEMIDE. [Concomitant]
     Active Substance: FUROSEMIDE
  6. ANASTROZOLE. [Concomitant]
     Active Substance: ANASTROZOLE

REACTIONS (3)
  - Dehydration [Unknown]
  - Hypertrophic cardiomyopathy [Unknown]
  - Cardiac aneurysm [Unknown]
